FAERS Safety Report 7788096-0 (Version None)
Quarter: 2011Q3

REPORT INFORMATION
  Report Type: 
  Country: None (occurrence: None)
  Receive Date: 20110930
  Receipt Date: 20110926
  Transmission Date: 20111222
  Serious: Yes (Other)
  Sender: FDA-Public Use
  Company Number: ZA-BAYER-2011-081813

PATIENT
  Age: 37 Year
  Sex: Male

DRUGS (10)
  1. BETASERON [Suspect]
     Indication: RELAPSING-REMITTING MULTIPLE SCLEROSIS
     Dosage: 8 MIU, QOD
     Route: 058
     Dates: start: 20060130, end: 20110901
  2. SEROQUEL [Concomitant]
     Dosage: 300 MG, QD
  3. UNCODEABLE ^UNCLASSIFIABLE^ [Concomitant]
     Dosage: 45 MG, QD
  4. MIRTAZAPINE [Concomitant]
     Dosage: 45 MG, QD
  5. SUBUTEX [Concomitant]
     Dosage: 8 MG, QD
     Dates: start: 20060130
  6. LYRICA [Concomitant]
     Dosage: 75 MG, BID
  7. LAMICTAL [Concomitant]
     Dosage: 100 MG, QD
  8. VALPROIC ACID [Concomitant]
     Dosage: 400 MG, BID
  9. VALPROATE SODIUM [Concomitant]
     Dosage: 400 MG, BID
  10. ALCHERA [Concomitant]
     Dosage: 15 MG, QD

REACTIONS (7)
  - PAIN [None]
  - CHEST PAIN [None]
  - SKIN MASS [None]
  - MULTIPLE SCLEROSIS [None]
  - LUPUS-LIKE SYNDROME [None]
  - MYALGIA [None]
  - ARTHRALGIA [None]
